FAERS Safety Report 12744982 (Version 1)
Quarter: 2016Q3

REPORT INFORMATION
  Report Type: Report from Study
  Country: FR (occurrence: FR)
  Receive Date: 20160915
  Receipt Date: 20160915
  Transmission Date: 20161109
  Serious: Yes (Hospitalization)
  Sender: FDA-Public Use
  Company Number: FR-ROCHE-1828386

PATIENT
  Sex: Female

DRUGS (7)
  1. PARACETAMOL [Concomitant]
     Active Substance: ACETAMINOPHEN
     Route: 065
     Dates: start: 20051124
  2. RITUXIMAB [Suspect]
     Active Substance: RITUXIMAB
     Indication: RHEUMATOID ARTHRITIS
     Route: 041
     Dates: start: 20050502
  3. TOCILIZUMAB [Suspect]
     Active Substance: TOCILIZUMAB
     Indication: RHEUMATOID ARTHRITIS
     Route: 065
     Dates: start: 20100423
  4. CORTANCYL [Concomitant]
     Active Substance: PREDNISONE
     Route: 065
     Dates: start: 20051124
  5. CORTANCYL [Concomitant]
     Active Substance: PREDNISONE
     Route: 065
     Dates: start: 20070319
  6. HYDROCORTISONE. [Concomitant]
     Active Substance: HYDROCORTISONE
     Route: 065
     Dates: start: 20051124
  7. CORTANCYL [Concomitant]
     Active Substance: PREDNISONE
     Route: 065
     Dates: start: 20050502

REACTIONS (15)
  - Bronchopneumopathy [Not Recovered/Not Resolved]
  - Infusion related reaction [Recovered/Resolved]
  - Pharyngitis [Recovered/Resolved]
  - Rash papular [Not Recovered/Not Resolved]
  - Influenza [Recovered/Resolved]
  - Dermatitis [Recovered/Resolved]
  - Device dislocation [Recovered/Resolved]
  - Hyperthyroidism [Not Recovered/Not Resolved]
  - Lung infection [Recovered/Resolved]
  - Rhinitis [Recovered/Resolved]
  - Ear infection [Recovered/Resolved]
  - Genital infection female [Recovered/Resolved]
  - Onychomycosis [Recovered/Resolved]
  - Cystitis [Recovered/Resolved]
  - Bronchitis [Recovered/Resolved]

NARRATIVE: CASE EVENT DATE: 20051124
